FAERS Safety Report 8816281 (Version 1)
Quarter: 2012Q4

REPORT INFORMATION
  Report Type: 
  Country: US (occurrence: US)
  Receive Date: 20121001
  Receipt Date: 20121001
  Transmission Date: 20130627
  Serious: Yes (Hospitalization)
  Sender: FDA-Public Use
  Company Number: US-TEVA-361118USA

PATIENT
  Age: 7 Year
  Sex: Male

DRUGS (4)
  1. HYDRALAZINE [Suspect]
     Indication: BLOOD PRESSURE
  2. AMLODIPINE [Suspect]
  3. MINOXIDIL [Suspect]
  4. SOLIRIS [Concomitant]

REACTIONS (6)
  - Penile oedema [Recovered/Resolved]
  - Scrotal swelling [Recovered/Resolved]
  - Oedema peripheral [Recovered/Resolved]
  - Drug level increased [Unknown]
  - Hypertension [Recovered/Resolved]
  - Haemolytic uraemic syndrome [Unknown]
